FAERS Safety Report 21013921 (Version 1)
Quarter: 2022Q2

REPORT INFORMATION
  Report Type: Spontaneous
  Country: US (occurrence: US)
  Receive Date: 20220627
  Receipt Date: 20220627
  Transmission Date: 20220721
  Serious: No
  Sender: FDA-Public Use
  Company Number: US-SA-SAC20220624001119

PATIENT
  Age: 19 Year
  Sex: Female

DRUGS (9)
  1. DUPIXENT [Suspect]
     Active Substance: DUPILUMAB
     Indication: Dermatitis atopic
     Dosage: 300 MG, QOW
     Route: 058
     Dates: start: 2020
  2. TRETINOIN [Concomitant]
     Active Substance: TRETINOIN
  3. TACROLIMUS [Concomitant]
     Active Substance: TACROLIMUS
  4. CLOBETASOL [Concomitant]
     Active Substance: CLOBETASOL
  5. VITAMINS [Concomitant]
     Active Substance: VITAMINS
  6. SULFAMETHOXAZOLE\TRIMETHOPRIM [Concomitant]
     Active Substance: SULFAMETHOXAZOLE\TRIMETHOPRIM
  7. PFIZER-BIONTECH COVID-19 VACCINE [Concomitant]
     Active Substance: TOZINAMERAN
     Indication: Immunisation
  8. VARICELLA-ZOSTER VIRUS STRAIN OKA/MERCK LIVE ANTIGEN [Concomitant]
     Active Substance: VARICELLA-ZOSTER VIRUS STRAIN OKA/MERCK LIVE ANTIGEN
     Indication: Immunisation
  9. DIPHTHERIA TETANUS PERTUSSIS VACCINE [Concomitant]
     Indication: Immunisation

REACTIONS (4)
  - Bursitis [Unknown]
  - Tendonitis [Unknown]
  - Arthralgia [Unknown]
  - Product dose omission in error [Unknown]

NARRATIVE: CASE EVENT DATE: 20220619
